FAERS Safety Report 6927677-0 (Version None)
Quarter: 2010Q3

REPORT INFORMATION
  Report Type: 
  Country: None (occurrence: None)
  Receive Date: 20100817
  Receipt Date: 20100709
  Transmission Date: 20110219
  Serious: No
  Sender: FDA-Public Use
  Company Number: A0869514A

PATIENT
  Age: 82 Year
  Sex: Male

DRUGS (9)
  1. VOTRIENT [Suspect]
     Dosage: 800MG AT NIGHT
     Route: 048
     Dates: start: 20100626
  2. NAMENDA [Suspect]
     Dosage: 5MG PER DAY
     Route: 065
     Dates: start: 20100701
  3. HYDROMORPHONE [Concomitant]
  4. FLOMAX [Concomitant]
  5. AVODART [Concomitant]
  6. ALPRAZOLAM [Concomitant]
  7. STOOL SOFTENER [Concomitant]
  8. LOSARTAN POTASSIUM [Concomitant]
  9. LIDODERM [Concomitant]

REACTIONS (5)
  - ALOPECIA [None]
  - DECREASED APPETITE [None]
  - HYPERSOMNIA [None]
  - INITIAL INSOMNIA [None]
  - SOMNOLENCE [None]
